FAERS Safety Report 19608772 (Version 1)
Quarter: 2021Q3

REPORT INFORMATION
  Report Type: Spontaneous
  Country: US (occurrence: US)
  Receive Date: 20210724
  Receipt Date: 20210724
  Transmission Date: 20211014
  Serious: Yes (Hospitalization, Disabling, Other)
  Sender: FDA-Public Use
  Company Number: None

PATIENT
  Age: 37 Year
  Sex: Male
  Weight: 148.5 kg

DRUGS (15)
  1. MODAFINIL. [Concomitant]
     Active Substance: MODAFINIL
  2. PROBIOTIC [Concomitant]
     Active Substance: PROBIOTICS NOS
  3. FLONASE [Concomitant]
     Active Substance: FLUTICASONE PROPIONATE
  4. MELATONIN [Concomitant]
     Active Substance: MELATONIN
  5. IBUPROFIN [Concomitant]
     Active Substance: IBUPROFEN
  6. TUMERIC [Concomitant]
     Active Substance: HERBALS\TURMERIC
  7. COSENTYX [Suspect]
     Active Substance: SECUKINUMAB
     Indication: ARTHRALGIA
     Dosage: ?          OTHER FREQUENCY:WEEKLYX4 THEN 1/MO;?
     Route: 058
     Dates: start: 20210409, end: 20210430
  8. GABAPENTIN. [Concomitant]
     Active Substance: GABAPENTIN
  9. VITAMIN D3 [Concomitant]
     Active Substance: CHOLECALCIFEROL
  10. PIROXICAM. [Concomitant]
     Active Substance: PIROXICAM
  11. VENLAFAXINE [Concomitant]
     Active Substance: VENLAFAXINE HYDROCHLORIDE
  12. CPAP [Concomitant]
     Active Substance: DEVICE
  13. GINSENG [Concomitant]
     Active Substance: ASIAN GINSENG
  14. GINKO BILOBA [Concomitant]
     Active Substance: GINKGO
  15. ASHWAGHANDA [Concomitant]

REACTIONS (4)
  - Somnolence [None]
  - Mental status changes [None]
  - Tremor [None]
  - Head titubation [None]

NARRATIVE: CASE EVENT DATE: 20210520
